FAERS Safety Report 9195404 (Version 1)
Quarter: 2013Q1

REPORT INFORMATION
  Report Type: Spontaneous
  Country: US (occurrence: US)
  Receive Date: 20130328
  Receipt Date: 20130328
  Transmission Date: 20140127
  Serious: No
  Sender: FDA-Public Use
  Company Number: US-ALLERGAN-1301696US

PATIENT
  Age: 47 Year
  Sex: Female

DRUGS (1)
  1. LUMIGAN? 0.01% [Suspect]
     Indication: GLAUCOMA
     Dosage: 2 GTT, QHS
     Route: 047

REACTIONS (8)
  - Eyelid irritation [Recovered/Resolved]
  - Eyelid pain [Recovered/Resolved]
  - Eyelid irritation [Recovered/Resolved]
  - Influenza like illness [Recovered/Resolved]
  - Dry eye [Recovered/Resolved]
  - Trichiasis [Recovered/Resolved]
  - Incorrect storage of drug [Unknown]
  - Growth of eyelashes [Recovered/Resolved]
